FAERS Safety Report 6807722-3 (Version None)
Quarter: 2010Q2

REPORT INFORMATION
  Report Type: 
  Country: None (occurrence: None)
  Receive Date: 20100629
  Receipt Date: 20081106
  Transmission Date: 20101027
  Serious: No
  Sender: FDA-Public Use
  Company Number: US-PFIZER INC-2008094267

PATIENT
  Age: 49 Year
  Sex: Female

DRUGS (2)
  1. ZYVOX [Suspect]
     Indication: STAPHYLOCOCCAL INFECTION
     Route: 048
  2. ZYVOX [Suspect]
     Indication: OSTEOMYELITIS

REACTIONS (1)
  - VISION BLURRED [None]
